FAERS Safety Report 14613531 (Version 2)
Quarter: 2018Q1

REPORT INFORMATION
  Report Type: Spontaneous
  Country: US (occurrence: US)
  Receive Date: 20180308
  Receipt Date: 20180313
  Transmission Date: 20180509
  Serious: No
  Sender: FDA-Public Use
  Company Number: US-PFIZER INC-2016318448

PATIENT
  Age: 68 Year
  Sex: Female

DRUGS (21)
  1. LYRICA [Suspect]
     Active Substance: PREGABALIN
     Indication: OSTEOPOROSIS
  2. BUTALB/ACETAMINOPHEN/CAFF [Concomitant]
     Indication: NEUROPATHY PERIPHERAL
  3. HYDROCODONE/VICODIN [Concomitant]
     Indication: MIGRAINE
     Dosage: UNK [HYDROCODONE: 10MG/VICODIN: 325MG]
  4. FLUTICASONE PROPIONATE. [Concomitant]
     Active Substance: FLUTICASONE PROPIONATE
     Dosage: UNK, AS NEEDED
     Route: 045
  5. MONTELUKAST SOD [Concomitant]
     Active Substance: MONTELUKAST SODIUM
     Dosage: 10 MG, UNK
  6. LEVOCETIRIZINE [Concomitant]
     Active Substance: LEVOCETIRIZINE
     Dosage: 5 MG, UNK
  7. CLONIDINE HCL [Concomitant]
     Active Substance: CLONIDINE HYDROCHLORIDE
     Dosage: 0.1 MG, UNK
  8. BABY ASPIRIN [Concomitant]
     Active Substance: ASPIRIN
     Dosage: UNK
  9. ALPRAZOLAM. [Concomitant]
     Active Substance: ALPRAZOLAM
     Dosage: 0.5 MG, UNK
  10. BUTALB/ACETAMINOPHEN/CAFF [Concomitant]
     Indication: MIGRAINE
     Dosage: UNK [BUTALB: 50/ACETAMINOPHEN: 325]
  11. HYDROCODONE/VICODIN [Concomitant]
     Indication: NEUROPATHY PERIPHERAL
  12. METOPROLOL XL [Concomitant]
     Active Substance: METOPROLOL SUCCINATE
     Dosage: 50 MG, 2X/DAY
  13. HYDROXYCHLOROQUINE [Concomitant]
     Active Substance: HYDROXYCHLOROQUINE
     Dosage: UNK (200)
  14. VALSTAR [Concomitant]
     Active Substance: VALRUBICIN
     Dosage: 160 MG, UNK
  15. LYRICA [Suspect]
     Active Substance: PREGABALIN
     Indication: NEUROPATHY PERIPHERAL
     Dosage: 75 MG, 3X/DAY
     Dates: start: 201801
  16. HYDROCODONE/VICODIN [Concomitant]
     Indication: RHEUMATOID ARTHRITIS
  17. LYRICA [Suspect]
     Active Substance: PREGABALIN
     Indication: MIGRAINE
  18. LYRICA [Suspect]
     Active Substance: PREGABALIN
     Indication: RHEUMATOID ARTHRITIS
  19. BUTALB/ACETAMINOPHEN/CAFF [Concomitant]
     Indication: RHEUMATOID ARTHRITIS
  20. CELECOXIB. [Concomitant]
     Active Substance: CELECOXIB
     Dosage: 200 MG, UNK
  21. LYRICA [Suspect]
     Active Substance: PREGABALIN
     Indication: FIBROMYALGIA
     Dosage: 75 MG, 2X/DAY

REACTIONS (5)
  - Pain in extremity [Unknown]
  - Headache [Unknown]
  - Muscle spasms [Unknown]
  - Pain [Unknown]
  - Arthralgia [Unknown]
